FAERS Safety Report 10572015 (Version 1)
Quarter: 2014Q4

REPORT INFORMATION
  Report Type: Spontaneous
  Country: US (occurrence: US)
  Receive Date: 20141107
  Receipt Date: 20141107
  Transmission Date: 20150529
  Serious: No
  Sender: FDA-Public Use
  Company Number: US-GILEAD-2014-0121418

PATIENT
  Age: 63 Year
  Sex: Male

DRUGS (2)
  1. SOVALDI [Suspect]
     Active Substance: SOFOSBUVIR
     Indication: HEPATITIS C
     Dosage: 400 MG, QD
     Route: 048
  2. OLYSIO [Concomitant]
     Active Substance: SIMEPREVIR
     Indication: HEPATITIS C

REACTIONS (6)
  - Malaise [Recovered/Resolved]
  - Influenza like illness [Unknown]
  - Middle insomnia [Unknown]
  - Drug dose omission [Unknown]
  - Asthenia [Unknown]
  - Product distribution issue [Unknown]
